FAERS Safety Report 12380947 (Version 1)
Quarter: 2016Q2

REPORT INFORMATION
  Report Type: Spontaneous
  Country: JP (occurrence: JP)
  Receive Date: 20160518
  Receipt Date: 20160518
  Transmission Date: 20160815
  Serious: Yes (Other)
  Sender: FDA-Public Use
  Company Number: JP-ACTAVIS-2016-10224

PATIENT
  Age: 47 Year
  Sex: Female

DRUGS (5)
  1. DOCETAXEL (UNKNOWN) [Suspect]
     Active Substance: DOCETAXEL
     Indication: SQUAMOUS CELL CARCINOMA
     Dosage: 60 MG/M2, CYCLICAL,  ON DAY 1, 3 CYCLES
     Route: 065
  2. CISPLATIN (UNKNOWN) [Suspect]
     Active Substance: CISPLATIN
     Dosage: 70 MG/M2, CYCLICAL; ON DAY 4; 3 CYCLS
     Route: 065
  3. CISPLATIN (UNKNOWN) [Suspect]
     Active Substance: CISPLATIN
     Indication: SQUAMOUS CELL CARCINOMA
     Dosage: 60 MG/M2, CYCLICAL; ON DAY 4;
     Route: 051
  4. FLUOROURACIL. [Suspect]
     Active Substance: FLUOROURACIL
     Dosage: 1000 MG/M2, CYCLICAL, FROM DAY 1 THROUGH DAY 4
     Route: 042
  5. FLUOROURACIL. [Suspect]
     Active Substance: FLUOROURACIL
     Indication: SQUAMOUS CELL CARCINOMA
     Dosage: 1000 MG/M2, CYCLICAL, ON DAYS 1?5
     Route: 065

REACTIONS (1)
  - Neutropenia [Unknown]
